FAERS Safety Report 24311471 (Version 1)
Quarter: 2024Q3

REPORT INFORMATION
  Report Type: Spontaneous
  Country: US (occurrence: US)
  Receive Date: 20240912
  Receipt Date: 20240912
  Transmission Date: 20241017
  Serious: No
  Sender: ALVOGEN
  Company Number: None

PATIENT

DRUGS (1)
  1. LISDEXAMFETAMINE DIMESYLATE [Suspect]
     Active Substance: LISDEXAMFETAMINE DIMESYLATE
     Indication: Product used for unknown indication
     Dosage: LISDEXAMFETAMINE 30MG CAPSULE

REACTIONS (15)
  - Loss of personal independence in daily activities [Unknown]
  - Brain fog [Unknown]
  - Cognitive disorder [Unknown]
  - Flat affect [Unknown]
  - Fatigue [Unknown]
  - Sluggishness [Unknown]
  - Depressed mood [Unknown]
  - Dizziness [Unknown]
  - Headache [Unknown]
  - Irritability [Unknown]
  - Palpitations [Unknown]
  - Tremor [Unknown]
  - Tachycardia [Unknown]
  - Therapeutic response decreased [Unknown]
  - Product substitution issue [Unknown]
